FAERS Safety Report 7617435-6 (Version None)
Quarter: 2011Q3

REPORT INFORMATION
  Report Type: 
  Country: None (occurrence: None)
  Receive Date: 20110718
  Receipt Date: 20110713
  Transmission Date: 20111222
  Serious: No
  Sender: FDA-Public Use
  Company Number: US-PFIZER INC-2011158545

PATIENT
  Sex: Male
  Weight: 82.54 kg

DRUGS (1)
  1. IBUPROFEN (ADVIL) [Suspect]
     Indication: MUSCULOSKELETAL DISORDER
     Dosage: 200 MG, AS NEEDED
     Route: 048
     Dates: end: 20110711

REACTIONS (2)
  - TONGUE INJURY [None]
  - POOR QUALITY DRUG ADMINISTERED [None]
